FAERS Safety Report 18980002 (Version 1)
Quarter: 2021Q1

REPORT INFORMATION
  Report Type: Spontaneous
  Country: US (occurrence: US)
  Receive Date: 20210305
  Receipt Date: 20210305
  Transmission Date: 20210420
  Serious: Yes (Disabling)
  Sender: FDA-Public Use
  Company Number: None

PATIENT
  Age: 46 Year
  Sex: Female
  Weight: 89.1 kg

DRUGS (8)
  1. MULTI VITAMIN [Concomitant]
     Active Substance: VITAMINS
  2. ZONOGRAN [Concomitant]
  3. MAGNESIUM [Concomitant]
     Active Substance: MAGNESIUM
  4. LAMICTAL [Concomitant]
     Active Substance: LAMOTRIGINE
  5. EMGALITY [Suspect]
     Active Substance: GALCANEZUMAB-GNLM
     Indication: MIGRAINE
     Route: 058
  6. OMEGA 3 [Concomitant]
     Active Substance: OMEGA-3 FATTY ACIDS
  7. CLONOPIN [Concomitant]
     Active Substance: CLONAZEPAM
  8. REPLACED THE TRIPTANS [Concomitant]

REACTIONS (3)
  - Bone pain [None]
  - Myalgia [None]
  - Product label issue [None]

NARRATIVE: CASE EVENT DATE: 20210220
